FAERS Safety Report 9430425 (Version 1)
Quarter: 2013Q3

REPORT INFORMATION
  Report Type: Spontaneous
  Country: FR (occurrence: FR)
  Receive Date: 20130730
  Receipt Date: 20130730
  Transmission Date: 20140515
  Serious: Yes (Hospitalization)
  Sender: FDA-Public Use
  Company Number: FR-GLAXOSMITHKLINE-B0909596A

PATIENT
  Age: 99 Year
  Sex: Female

DRUGS (1)
  1. ARIXTRA [Suspect]
     Indication: THROMBOPHLEBITIS
     Dosage: 5MG PER DAY
     Route: 058
     Dates: start: 20130510, end: 20130518

REACTIONS (2)
  - Subcutaneous haematoma [Recovered/Resolved]
  - Skin necrosis [Recovered/Resolved]
